FAERS Safety Report 18676923 (Version 1)
Quarter: 2020Q4

REPORT INFORMATION
  Report Type: Report from Study
  Country: CA (occurrence: CA)
  Receive Date: 20201229
  Receipt Date: 20201229
  Transmission Date: 20210114
  Serious: Yes (Other)
  Sender: FDA-Public Use
  Company Number: CA-PFIZER INC-2020512586

PATIENT
  Age: 39 Year
  Sex: Male

DRUGS (3)
  1. CELEBREX [Suspect]
     Active Substance: CELECOXIB
     Route: 065
  2. DICLOFENAC [Suspect]
     Active Substance: DICLOFENAC
     Route: 065
  3. INDOCID [INDOMETACIN] [Suspect]
     Active Substance: INDOMETHACIN
     Route: 065

REACTIONS (5)
  - Ankylosing spondylitis [Unknown]
  - Drug intolerance [Unknown]
  - Migraine [Unknown]
  - Gastrointestinal disorder [Unknown]
  - Pain [Unknown]
